FAERS Safety Report 12423030 (Version 1)
Quarter: 2016Q2

REPORT INFORMATION
  Report Type: Spontaneous
  Country: US (occurrence: None)
  Receive Date: 20160531
  Receipt Date: 20160531
  Transmission Date: 20160815
  Serious: No
  Sender: FDA-Public Use
  Company Number: None

PATIENT
  Sex: Female

DRUGS (6)
  1. R INSULIN [Suspect]
     Active Substance: INSULIN HUMAN
  2. R INSULIN [Concomitant]
  3. INVOKANA [Concomitant]
     Active Substance: CANAGLIFLOZIN
  4. TOUJEO [Concomitant]
     Active Substance: INSULIN GLARGINE
  5. METFORMIN [Concomitant]
     Active Substance: METFORMIN HYDROCHLORIDE
  6. BYDUREON [Suspect]
     Active Substance: EXENATIDE

REACTIONS (6)
  - Fungal infection [None]
  - Streptococcal infection [None]
  - Candida infection [None]
  - Injection site infection [None]
  - Conjunctivitis [None]
  - Incorrect drug administration duration [None]
